FAERS Safety Report 8960598 (Version 1)
Quarter: 2012Q4

REPORT INFORMATION
  Report Type: 
  Country: TH (occurrence: TH)
  Receive Date: 20121213
  Receipt Date: 20121213
  Transmission Date: 20130627
  Serious: Yes (Death, Hospitalization, Other)
  Sender: FDA-Public Use
  Company Number: PHHY2012TH114043

PATIENT
  Age: 73 Year
  Sex: Male

DRUGS (1)
  1. ZOMETA [Suspect]
     Indication: METASTASES TO BONE
     Dosage: 4 mg/time per month
     Route: 041

REACTIONS (5)
  - Pulmonary oedema [Fatal]
  - Pallor [Fatal]
  - Pulmonary haemorrhage [Unknown]
  - Metastases to lung [Unknown]
  - Dyspnoea [Unknown]
